FAERS Safety Report 5546095-3 (Version None)
Quarter: 2007Q4

REPORT INFORMATION
  Report Type: 
  Country: None (occurrence: None)
  Receive Date: 20071211
  Receipt Date: 20071008
  Transmission Date: 20080405
  Serious: No
  Sender: FDA-Public Use
  Company Number: US-BRISTOL-MYERS SQUIBB COMPANY-13933163

PATIENT
  Sex: Female

DRUGS (4)
  1. EMSAM [Suspect]
     Indication: DEPRESSION
     Dosage: DOSE WAS INCREASED TO 9MG
     Route: 062
  2. ALPRAZOLAM [Concomitant]
  3. RISPERDAL [Concomitant]
  4. RISPERDAL [Concomitant]

REACTIONS (1)
  - APPLICATION SITE REACTION [None]
